FAERS Safety Report 24203991 (Version 1)
Quarter: 2024Q3

REPORT INFORMATION
  Report Type: Spontaneous
  Country: AU (occurrence: AU)
  Receive Date: 20240813
  Receipt Date: 20240813
  Transmission Date: 20241016
  Serious: Yes (Other)
  Sender: RANBAXY
  Company Number: AU-SUN PHARMACEUTICAL INDUSTRIES LTD-2024R1-461482

PATIENT
  Age: 18 Year
  Sex: Female

DRUGS (3)
  1. AZITHROMYCIN [Suspect]
     Active Substance: AZITHROMYCIN
     Indication: Pneumonia
     Route: 065
  2. HYDROCORTISONE [Suspect]
     Active Substance: HYDROCORTISONE\HYDROCORTISONE ACETATE
     Indication: Pneumonia
     Dosage: 100 MILLIGRAM, TID
     Route: 042
  3. MEROPENEM [Suspect]
     Active Substance: MEROPENEM
     Indication: Pneumonia
     Route: 065

REACTIONS (3)
  - Pneumomediastinum [Recovering/Resolving]
  - Drug ineffective [Unknown]
  - Respiratory failure [Recovering/Resolving]
